FAERS Safety Report 9872199 (Version 2)
Quarter: 2014Q1

REPORT INFORMATION
  Report Type: Spontaneous
  Country: None (occurrence: US)
  Receive Date: 20140205
  Receipt Date: 20140205
  Transmission Date: 20141002
  Serious: No
  Sender: FDA-Public Use
  Company Number: US-ALLERGAN-1306381US

PATIENT
  Age: 50 Year
  Sex: Female

DRUGS (6)
  1. BOTOX COSMETIC [Suspect]
     Indication: SKIN WRINKLING
     Dosage: UNK, SINGLE
     Dates: start: 20130410, end: 20130410
  2. BOTOX COSMETIC [Suspect]
     Indication: SKIN WRINKLING
     Dosage: UNK, SINGLE
     Route: 030
     Dates: start: 20130327, end: 20130327
  3. BOTOX COSMETIC [Suspect]
     Indication: SKIN WRINKLING
  4. RADIESSE [Suspect]
     Indication: PRODUCT USED FOR UNKNOWN INDICATION
     Dosage: UNK
     Dates: start: 20130327
  5. STEROIDS NOS [Suspect]
     Indication: NAUSEA
     Dosage: UNK
  6. STEROIDS NOS [Suspect]
     Indication: RESPIRATORY DISORDER

REACTIONS (6)
  - Palpitations [Unknown]
  - Drug administered at inappropriate site [Unknown]
  - Drug administered at inappropriate site [Unknown]
  - Respiratory disorder [Unknown]
  - Nausea [Unknown]
  - Dry mouth [Unknown]
